FAERS Safety Report 10268495 (Version 1)
Quarter: 2014Q2

REPORT INFORMATION
  Report Type: Spontaneous
  Country: US (occurrence: IT)
  Receive Date: 20140630
  Receipt Date: 20140630
  Transmission Date: 20141212
  Serious: Yes (Other)
  Sender: FDA-Public Use
  Company Number: IT-FRI-1000068575

PATIENT
  Age: 63 Year
  Sex: Female

DRUGS (2)
  1. ASENAPINE [Suspect]
     Indication: BIPOLAR DISORDER
     Dosage: 20 MG
     Route: 060
     Dates: start: 201405, end: 201406
  2. DOPAMIDE [Suspect]
     Indication: BIPOLAR DISORDER
     Dosage: 750 MG
     Route: 048
     Dates: start: 201405, end: 201406

REACTIONS (4)
  - Euphoric mood [Recovering/Resolving]
  - Logorrhoea [Recovering/Resolving]
  - Insomnia [Recovering/Resolving]
  - Restlessness [Recovering/Resolving]
